FAERS Safety Report 20503353 (Version 4)
Quarter: 2024Q1

REPORT INFORMATION
  Report Type: Spontaneous
  Country: US (occurrence: US)
  Receive Date: 20220222
  Receipt Date: 20240222
  Transmission Date: 20240410
  Serious: Yes (Other)
  Sender: FDA-Public Use
  Company Number: US-OTSUKA-2021_043844

PATIENT
  Age: 36 Year
  Sex: Male
  Weight: 90.72 kg

DRUGS (2)
  1. ABILIFY MAINTENA [Suspect]
     Active Substance: ARIPIPRAZOLE
     Indication: Schizophrenia
     Dosage: 400 MG, QM
     Route: 065
     Dates: start: 20180205
  2. ABILIFY MAINTENA [Suspect]
     Active Substance: ARIPIPRAZOLE
     Indication: Bipolar disorder

REACTIONS (4)
  - Homicidal ideation [Unknown]
  - Syringe issue [Unknown]
  - Product dose omission issue [Unknown]
  - Drug monitoring procedure not performed [Unknown]

NARRATIVE: CASE EVENT DATE: 20211213
